FAERS Safety Report 8387395-1 (Version None)
Quarter: 2012Q2

REPORT INFORMATION
  Report Type: 
  Country: None (occurrence: None)
  Receive Date: 20120525
  Receipt Date: 20120521
  Transmission Date: 20120825
  Serious: Yes (Life-Threatening)
  Sender: FDA-Public Use
  Company Number: IN-ROCHE-800342

PATIENT
  Age: 55 Year
  Sex: Female
  Weight: 56 kg

DRUGS (5)
  1. RIBOFLAVIN [Concomitant]
  2. VITAMIN B COMPLEX CAP [Concomitant]
     Indication: DECREASED APPETITE
  3. HERCEPTIN [Suspect]
     Indication: BREAST CANCER
     Dosage: DATE OF LAST PRIOR TO EVEMT: 22 JUL 2010, PERMANENTLY WITHDRAWN
     Route: 042
     Dates: start: 20100521, end: 20100805
  4. PACLITAXEL [Suspect]
     Indication: BREAST CANCER
     Dosage: DATE OF LAST PRIOR TO EVEMT: 22 JUL 2010, PERMANENTLY WITHDRAWN
     Route: 042
     Dates: start: 20100521, end: 20100805
  5. THIAMINE [Concomitant]

REACTIONS (1)
  - PULMONARY TUBERCULOSIS [None]
